FAERS Safety Report 4898168-6 (Version None)
Quarter: 2006Q1

REPORT INFORMATION
  Report Type: 
  Country: None (occurrence: None)
  Receive Date: 20060127
  Receipt Date: 20060110
  Transmission Date: 20060701
  Serious: Yes (Other)
  Sender: FDA-Public Use
  Company Number: CIO05014430

PATIENT
  Age: 15 Year
  Sex: Male
  Weight: 63.5 kg

DRUGS (2)
  1. VAPOSTEAM [Suspect]
     Indication: INFLUENZA
     Dosage: 10 ML, 1 ONLY FOR 1 DAY, ORAL
     Route: 048
     Dates: start: 20050819, end: 20050819
  2. ZYRTEC [Concomitant]

REACTIONS (14)
  - ABDOMINAL PAIN [None]
  - APHASIA [None]
  - DYSPEPSIA [None]
  - EPIGASTRIC DISCOMFORT [None]
  - EYE SWELLING [None]
  - FEELING ABNORMAL [None]
  - LOCALISED OEDEMA [None]
  - LYMPHADENOPATHY [None]
  - MEDICATION ERROR [None]
  - PHARYNGOLARYNGEAL PAIN [None]
  - RESPIRATORY DISORDER [None]
  - THROAT IRRITATION [None]
  - TONSILLITIS [None]
  - URTICARIA GENERALISED [None]
